FAERS Safety Report 23207751 (Version 2)
Quarter: 2024Q1

REPORT INFORMATION
  Report Type: Report from Study
  Country: BR (occurrence: BR)
  Receive Date: 20231121
  Receipt Date: 20240201
  Transmission Date: 20240410
  Serious: Yes (Other)
  Sender: FDA-Public Use
  Company Number: BR-TAKEDA-2023TUS038270

PATIENT
  Age: 39 Year
  Sex: Female

DRUGS (1)
  1. VEDOLIZUMAB [Suspect]
     Active Substance: VEDOLIZUMAB
     Indication: Crohn^s disease
     Dosage: 300 MILLIGRAM
     Route: 042
     Dates: start: 20220114

REACTIONS (3)
  - Crohn^s disease [Unknown]
  - Product dose omission issue [Unknown]
  - Product availability issue [Unknown]

NARRATIVE: CASE EVENT DATE: 20230406
